FAERS Safety Report 7731089-X (Version None)
Quarter: 2011Q3

REPORT INFORMATION
  Report Type: 
  Country: None (occurrence: None)
  Receive Date: 20110906
  Receipt Date: 20110906
  Transmission Date: 20111222
  Serious: Yes (Disabling, Other)
  Sender: FDA-Public Use
  Company Number: None

PATIENT
  Age: 56 Year
  Sex: Female
  Weight: 124.28 kg

DRUGS (1)
  1. ZOMETA [Suspect]

REACTIONS (2)
  - IMPAIRED HEALING [None]
  - STOMATITIS [None]
